FAERS Safety Report 7383014-1 (Version None)
Quarter: 2011Q1

REPORT INFORMATION
  Report Type: 
  Country: None (occurrence: None)
  Receive Date: 20110330
  Receipt Date: 20110323
  Transmission Date: 20110831
  Serious: No
  Sender: FDA-Public Use
  Company Number: US-PFIZER INC-2011065444

PATIENT
  Sex: Male

DRUGS (6)
  1. FLUOROURACIL [Concomitant]
     Indication: COLORECTAL CANCER METASTATIC
     Dosage: UNK
     Dates: start: 20101201
  2. CAMPTOSAR [Suspect]
     Indication: COLORECTAL CANCER METASTATIC
     Dosage: UNK
  3. ERBITUX [Suspect]
     Indication: COLORECTAL CANCER METASTATIC
     Dosage: UNK
  4. ELOXATIN [Suspect]
     Dosage: 210 MG, UNK
     Dates: start: 20110221
  5. LEUCOVORIN [Concomitant]
     Indication: COLORECTAL CANCER METASTATIC
     Dosage: UNK
     Dates: start: 20101201
  6. ELOXATIN [Suspect]
     Indication: COLORECTAL CANCER METASTATIC
     Dosage: UNK
     Dates: start: 20101201

REACTIONS (2)
  - DIARRHOEA [None]
  - RASH [None]
